FAERS Safety Report 14392579 (Version 4)
Quarter: 2018Q2

REPORT INFORMATION
  Report Type: Spontaneous
  Country: US (occurrence: US)
  Receive Date: 20180116
  Receipt Date: 20180607
  Transmission Date: 20180711
  Serious: No
  Sender: FDA-Public Use
  Company Number: US-PFIZER INC-2018020320

PATIENT
  Age: 75 Year
  Sex: Female

DRUGS (1)
  1. XELJANZ XR [Suspect]
     Active Substance: TOFACITINIB CITRATE
     Dosage: 11 MG, UNK
     Dates: start: 201711

REACTIONS (8)
  - Cough [Unknown]
  - Nasopharyngitis [Unknown]
  - Nausea [Unknown]
  - Fall [Unknown]
  - Skin abrasion [Unknown]
  - Drug ineffective [Unknown]
  - Pain [Unknown]
  - Condition aggravated [Not Recovered/Not Resolved]
